FAERS Safety Report 23821480 (Version 2)
Quarter: 2025Q1

REPORT INFORMATION
  Report Type: Report from Study
  Country: FR (occurrence: FR)
  Receive Date: 20240506
  Receipt Date: 20250319
  Transmission Date: 20250408
  Serious: Yes (Hospitalization)
  Sender: UCB
  Company Number: FR-UCBSA-2024017671

PATIENT
  Age: 34 Year
  Sex: Female
  Weight: 90 kg

DRUGS (12)
  1. BIMEKIZUMAB [Suspect]
     Active Substance: BIMEKIZUMAB
     Indication: Psoriasis
     Dosage: 320 MILLIGRAM, EV 4 WEEKS
     Route: 058
     Dates: start: 20231123, end: 20231221
  2. APREMILAST [Concomitant]
     Active Substance: APREMILAST
     Indication: Drug intolerance
     Dates: start: 20230912, end: 20231121
  3. OTEZLA [Concomitant]
     Active Substance: APREMILAST
     Indication: Psoriasis
     Dosage: 30 MILLIGRAM, 2X/DAY (BID)
     Route: 058
     Dates: start: 20230912, end: 20231121
  4. PROPIONATE [Concomitant]
     Indication: Psoriasis
     Route: 061
     Dates: start: 20240123, end: 20240223
  5. DUPIXENT [Concomitant]
     Active Substance: DUPILUMAB
     Indication: Psoriasis
     Dosage: 0.05 PERCENT, EVERY MORNING
     Route: 058
     Dates: start: 20240126
  6. ACETAMINOPHEN [Concomitant]
     Active Substance: ACETAMINOPHEN
     Indication: Pain
     Dosage: 500 MILLIGRAM, 3X/DAY (TID)
     Route: 048
     Dates: start: 20240123
  7. DEXAMETHASONE\OXYTETRACYCLINE [Concomitant]
     Active Substance: DEXAMETHASONE\OXYTETRACYCLINE
     Indication: Eye infection bacterial
     Dosage: 0.05 PERCENT, EVERY MORNING
     Route: 061
     Dates: start: 20240126
  8. CABERGOLINE [Concomitant]
     Active Substance: CABERGOLINE
     Indication: Blood prolactin decreased
     Dosage: 0.5 MILLIGRAM, EV 2 WEEKS(QOW)
     Route: 048
     Dates: start: 20240204
  9. METOCLOPRAMIDE HYDROCHLORIDE [Concomitant]
     Active Substance: METOCLOPRAMIDE HYDROCHLORIDE
     Indication: Anxiety
     Dosage: 25 MILLIGRAM, EVERY NIGHT
     Route: 048
     Dates: start: 20240126, end: 20240419
  10. DEXERYL [CHLORPHENAMINE MALEATE;DEXTROMETHORPHAN HYDROBROMIDE;GUAIFENE [Concomitant]
     Indication: Psoriasis
     Dosage: UNK, ONCE DAILY (QD)
     Route: 061
     Dates: start: 20231121, end: 202403
  11. CLOBEX [Concomitant]
     Active Substance: CLOBETASOL PROPIONATE
     Indication: Psoriasis
     Dosage: UNK, 2X/DAY (BID)
     Route: 061
     Dates: start: 20231121, end: 202403
  12. ENSTILAR [BETAMETHASONE DIPROPIONATE;CALCIPOTRIOL] [Concomitant]
     Indication: Psoriasis
     Route: 058
     Dates: start: 20230803

REACTIONS (2)
  - Rash [Recovered/Resolved]
  - Adverse event [Unknown]

NARRATIVE: CASE EVENT DATE: 20240102
